FAERS Safety Report 23562190 (Version 1)
Quarter: 2024Q1

REPORT INFORMATION
  Report Type: Spontaneous
  Country: US (occurrence: US)
  Receive Date: 20240226
  Receipt Date: 20240226
  Transmission Date: 20240409
  Serious: Yes (Other)
  Sender: FDA-Public Use
  Company Number: US-STRIDES ARCOLAB LIMITED-2024SP000872

PATIENT
  Age: 27 Year
  Sex: Female

DRUGS (22)
  1. VANCOMYCIN [Suspect]
     Active Substance: VANCOMYCIN
     Indication: Clostridium difficile infection
     Dosage: 500 MG, QID
     Route: 048
  2. VANCOMYCIN [Suspect]
     Active Substance: VANCOMYCIN
     Dosage: UNK
     Route: 048
     Dates: start: 2017
  3. VANCOMYCIN [Suspect]
     Active Substance: VANCOMYCIN
     Dosage: UNK FOR COUPLE OF WEEKS
     Route: 048
  4. METRONIDAZOLE [Suspect]
     Active Substance: METRONIDAZOLE
     Indication: Clostridium difficile infection
     Dosage: 500 MG, TID FOR 10 DAYS
     Route: 065
  5. MESALAMINE [Suspect]
     Active Substance: MESALAMINE
     Indication: Clostridium difficile infection
     Dosage: 1.2 G DAILY FOR 6 WEEKS
     Route: 048
  6. MESALAMINE [Suspect]
     Active Substance: MESALAMINE
     Dosage: UNK
     Route: 048
     Dates: start: 20151009
  7. MESALAMINE [Suspect]
     Active Substance: MESALAMINE
     Dosage: UNK
     Route: 048
     Dates: start: 2019
  8. MESALAMINE [Suspect]
     Active Substance: MESALAMINE
     Dosage: UNK
     Route: 048
  9. MERCAPTOPURINE [Suspect]
     Active Substance: MERCAPTOPURINE
     Indication: Clostridium difficile infection
     Dosage: UNK
     Route: 065
  10. MERCAPTOPURINE [Suspect]
     Active Substance: MERCAPTOPURINE
     Dosage: UNK, PRN (AS NEEDED)
     Route: 065
     Dates: start: 202010
  11. BUDESONIDE [Suspect]
     Active Substance: BUDESONIDE
     Indication: Clostridium difficile infection
     Dosage: 9 MG, BID
     Route: 048
  12. BUDESONIDE [Suspect]
     Active Substance: BUDESONIDE
     Dosage: 9 MG
     Route: 048
     Dates: start: 2019
  13. BUDESONIDE [Suspect]
     Active Substance: BUDESONIDE
     Dosage: 9 MG
     Route: 048
     Dates: start: 2019
  14. VEDOLIZUMAB [Suspect]
     Active Substance: VEDOLIZUMAB
     Indication: Clostridium difficile infection
     Dosage: 300 MG FLAT DOSE APPROXIMATELY 30 MIN IV INFUSION EVERY 7 DAYS
     Route: 042
     Dates: start: 2016
  15. VEDOLIZUMAB [Suspect]
     Active Substance: VEDOLIZUMAB
     Dosage: UNK (SOLUTION)
     Route: 042
     Dates: start: 2017
  16. HYDROCORTISONE [Suspect]
     Active Substance: HYDROCORTISONE
     Indication: Clostridium difficile infection
     Dosage: 30 MG
     Route: 065
  17. ADALIMUMAB [Suspect]
     Active Substance: ADALIMUMAB\ISOPROPYL ALCOHOL
     Indication: Clostridium difficile infection
     Dosage: 40 MICROGRAM EVERY 2 WEEKS
     Route: 065
     Dates: start: 20151009
  18. GOLIMUMAB [Concomitant]
     Active Substance: GOLIMUMAB
     Indication: Clostridium difficile infection
     Dosage: 200 MG/ML AT WEEK 0
     Route: 065
  19. GOLIMUMAB [Concomitant]
     Active Substance: GOLIMUMAB
     Dosage: 100 MG/ML AT WEEK 2
     Route: 065
  20. GOLIMUMAB [Concomitant]
     Active Substance: GOLIMUMAB
     Dosage: 100 MG, EVERY 4 WEEKS
     Route: 065
  21. FIDAXOMICIN [Concomitant]
     Active Substance: FIDAXOMICIN
     Indication: Clostridium difficile infection
     Dosage: UNK
     Route: 065
  22. TOFACITINIB [Concomitant]
     Active Substance: TOFACITINIB
     Indication: Clostridium difficile infection
     Dosage: 100 MILLIGRAM, BID
     Route: 065
     Dates: start: 2020

REACTIONS (2)
  - Treatment failure [Unknown]
  - Drug ineffective [Unknown]
